FAERS Safety Report 11884640 (Version 2)
Quarter: 2016Q1

REPORT INFORMATION
  Report Type: Spontaneous
  Country: US (occurrence: US)
  Receive Date: 20160104
  Receipt Date: 20160105
  Transmission Date: 20160526
  Serious: No
  Sender: FDA-Public Use
  Company Number: US-009507513-1512USA013727

PATIENT
  Age: 21 Year
  Sex: Female

DRUGS (1)
  1. NEXPLANON [Suspect]
     Active Substance: ETONOGESTREL
     Indication: CONTRACEPTION
     Dosage: 1 IMPLANT/3 YEARS
     Route: 059
     Dates: start: 20151123

REACTIONS (5)
  - Pregnancy with implant contraceptive [Unknown]
  - Abdominal pain upper [Unknown]
  - Back pain [Unknown]
  - Unintended pregnancy [Unknown]
  - Implant site pain [Unknown]

NARRATIVE: CASE EVENT DATE: 2015
